FAERS Safety Report 11579200 (Version 1)
Quarter: 2015Q3

REPORT INFORMATION
  Report Type: Spontaneous
  Country: US (occurrence: US)
  Receive Date: 20150930
  Receipt Date: 20150930
  Transmission Date: 20151125
  Serious: No
  Sender: FDA-Public Use
  Company Number: US-PFIZER INC-2015323631

PATIENT
  Age: 81 Year
  Sex: Male

DRUGS (3)
  1. TIKOSYN [Suspect]
     Active Substance: DOFETILIDE
     Indication: ATRIAL FIBRILLATION
     Dosage: 250 ?G, UNK
  2. CIPRO [Suspect]
     Active Substance: CIPROFLOXACIN HYDROCHLORIDE
     Indication: SALMONELLOSIS
     Dosage: UNK
     Dates: start: 201507
  3. TIKOSYN [Suspect]
     Active Substance: DOFETILIDE
     Dosage: 500 ?G, UNK

REACTIONS (1)
  - Contraindicated drug administered [Unknown]
